FAERS Safety Report 24444587 (Version 4)
Quarter: 2025Q3

REPORT INFORMATION
  Report Type: Report from Study
  Country: ZA (occurrence: ZA)
  Receive Date: 20241016
  Receipt Date: 20250808
  Transmission Date: 20251020
  Serious: Yes (Death, Hospitalization, Other)
  Sender: ROCHE
  Company Number: ZA-ROCHE-2938695

PATIENT
  Age: 80 Year
  Sex: Female
  Weight: 64 kg

DRUGS (2)
  1. RITUXIMAB [Suspect]
     Active Substance: RITUXIMAB
     Indication: Rheumatoid arthritis
     Dosage: REPEATED 6-MONTHLY?08-JUN-2023 AND 21-JUN-2023 (1 DAY EARLY)
     Route: 042
     Dates: start: 20210421
  2. RITUXIMAB [Suspect]
     Active Substance: RITUXIMAB
     Dosage: EVERY 6 MONTHS
     Route: 042

REACTIONS (15)
  - Platelet count decreased [Unknown]
  - White blood cell count decreased [Unknown]
  - C-reactive protein increased [Unknown]
  - Diarrhoea [Unknown]
  - Dehydration [Unknown]
  - Haemoglobin decreased [Unknown]
  - Urinary tract infection [Unknown]
  - Platelet count increased [Unknown]
  - Knee arthroplasty [Unknown]
  - White blood cell count increased [Unknown]
  - Blood creatinine increased [Unknown]
  - Malaise [Unknown]
  - Ill-defined disorder [Unknown]
  - C-reactive protein increased [Unknown]
  - Death [Fatal]

NARRATIVE: CASE EVENT DATE: 20230511
